FAERS Safety Report 18962477 (Version 1)
Quarter: 2021Q1

REPORT INFORMATION
  Report Type: Report from Study
  Country: US (occurrence: US)
  Receive Date: 20210303
  Receipt Date: 20210303
  Transmission Date: 20210420
  Serious: Yes (Life-Threatening)
  Sender: FDA-Public Use
  Company Number: US-BAYER-2021-086318

PATIENT
  Age: 91 Year
  Sex: Male
  Weight: 106.1 kg

DRUGS (2)
  1. APIXABAN [Suspect]
     Active Substance: APIXABAN
     Dosage: 46.9 UNITS/KG
  2. ASPIRIN 81 MG [Suspect]
     Active Substance: ASPIRIN
     Dosage: 0.18 ?G/KG

REACTIONS (3)
  - Subdural haematoma [None]
  - Haemorrhage intracranial [None]
  - Labelled drug-drug interaction medication error [None]
